FAERS Safety Report 9720278 (Version 1)
Quarter: 2013Q4

REPORT INFORMATION
  Report Type: Spontaneous
  Country: DE (occurrence: DE)
  Receive Date: 20131129
  Receipt Date: 20131129
  Transmission Date: 20140711
  Serious: Yes (Other)
  Sender: FDA-Public Use
  Company Number: DE-JNJFOC-20131115566

PATIENT
  Age: 49 Year
  Sex: Female

DRUGS (2)
  1. REGAINE MAENNER 5% [Suspect]
     Route: 061
  2. REGAINE MAENNER 5% [Suspect]
     Indication: PRODUCT USED FOR UNKNOWN INDICATION
     Route: 061

REACTIONS (2)
  - Basal cell carcinoma [Not Recovered/Not Resolved]
  - Wrong patient received medication [Not Recovered/Not Resolved]
